FAERS Safety Report 7320318 (Version 5)
Quarter: 2012Q4

REPORT INFORMATION
  Report Type: Report from Study
  Country: JP (occurrence: JP)
  Receive Date: 20100315
  Receipt Date: 20121108
  Transmission Date: 20130627
  Serious: Yes (Death)
  Sender: FDA-Public Use
  Company Number: JP-BRISTOL-MYERS SQUIBB COMPANY-15007131

PATIENT
  Age: 24 Year
  Sex: Male
  Weight: 51 kg

DRUGS (1)
  1. SPRYCEL [Suspect]
     Indication: CHRONIC MYELOID LEUKAEMIA
     Dosage: 27Oct09(100-100mg120mg)modifd dasat thrpy,27Ot-11No09,100mg 1/dy,120mg/evry 3dys,100mg/2 evry 3dys
     Route: 048
     Dates: start: 20091027, end: 20100126

REACTIONS (1)
  - Malignant neoplasm progression [Fatal]
